FAERS Safety Report 7657742-4 (Version None)
Quarter: 2011Q3

REPORT INFORMATION
  Report Type: 
  Country: None (occurrence: None)
  Receive Date: 20110804
  Receipt Date: 20110520
  Transmission Date: 20111222
  Serious: No
  Sender: FDA-Public Use
  Company Number: US-BAYER-2011-048635

PATIENT
  Age: 49 Year
  Sex: Male

DRUGS (1)
  1. NAPROXEN SODIUM [Suspect]
     Indication: ARTHRITIS
     Dosage: DAILY DOSE 6 DF
     Route: 048
     Dates: start: 20090101, end: 20090101

REACTIONS (1)
  - PAIN IN EXTREMITY [None]
